FAERS Safety Report 19034540 (Version 3)
Quarter: 2022Q1

REPORT INFORMATION
  Report Type: Spontaneous
  Country: JP (occurrence: JP)
  Receive Date: 20210320
  Receipt Date: 20220214
  Transmission Date: 20220423
  Serious: Yes (Life-Threatening, Hospitalization)
  Sender: FDA-Public Use
  Company Number: JP-CELLTRION INC.-2021JP003591

PATIENT

DRUGS (11)
  1. TRASTUZUMAB [Suspect]
     Active Substance: TRASTUZUMAB
     Indication: Gastric cancer recurrent
     Dosage: 376 MG, QD (60 MG[NK])
     Route: 042
     Dates: start: 20191023, end: 20200115
  2. TRASTUZUMAB [Suspect]
     Active Substance: TRASTUZUMAB
     Indication: HER2 positive gastric cancer
     Dosage: 376 MG, QD (150 MG[NK])
     Route: 042
     Dates: start: 20191023, end: 20200115
  3. TRASTUZUMAB [Suspect]
     Active Substance: TRASTUZUMAB
     Dosage: 8 MG/KG AS LOADING DOSE (GIVEN ON DAY 1 OF A 3-WEEK CYCLE)
  4. TRASTUZUMAB [Suspect]
     Active Substance: TRASTUZUMAB
     Dosage: 6 MG/KG (GIVEN ON DAY 1 OF A 3-WEEK CYCLE)
  5. TRASTUZUMAB [Suspect]
     Active Substance: TRASTUZUMAB
     Dosage: 8MG/KG AFTER A 3-WEEK INTERVAL
  6. OXALIPLATIN [Suspect]
     Active Substance: OXALIPLATIN
     Indication: HER2 positive gastric cancer
     Dosage: 142.2 MG, QD
     Route: 042
     Dates: start: 20191023
  7. OXALIPLATIN [Concomitant]
     Active Substance: OXALIPLATIN
     Indication: Gastric cancer recurrent
     Dosage: 100 MG/M2
     Route: 042
  8. GIMERACIL\OTERACIL\TEGAFUR [Concomitant]
     Active Substance: GIMERACIL\OTERACIL\TEGAFUR
     Indication: Gastric cancer recurrent
     Dosage: UNK
  9. GIMERACIL\OTERACIL\TEGAFUR [Concomitant]
     Active Substance: GIMERACIL\OTERACIL\TEGAFUR
     Indication: HER2 positive gastric cancer
     Dosage: 50 MG TWICE DAILY ON A 2-WEEK ON AND 1-WEEK OFF SCHEDULE
     Route: 048
     Dates: start: 20191023
  10. DEXAMETHASONE SODIUM PHOSPHATE [Concomitant]
     Active Substance: DEXAMETHASONE SODIUM PHOSPHATE
     Indication: Premedication
     Dosage: UNK
     Dates: start: 20191023
  11. GRANISETRON [Concomitant]
     Active Substance: GRANISETRON
     Indication: Premedication
     Dosage: UNK
     Dates: start: 20191023

REACTIONS (5)
  - Thrombocytopenia [Recovered/Resolved]
  - Immune thrombocytopenia [Recovered/Resolved]
  - Haematuria [Unknown]
  - Infusion related reaction [Unknown]
  - Overdose [Unknown]

NARRATIVE: CASE EVENT DATE: 20191023
